FAERS Safety Report 4503501-0 (Version None)
Quarter: 2004Q4

REPORT INFORMATION
  Report Type: 
  Country: None (occurrence: None)
  Receive Date: 20041115
  Receipt Date: 20041029
  Transmission Date: 20050328
  Serious: Yes (Hospitalization)
  Sender: FDA-Public Use
  Company Number: 2004AP05566

PATIENT
  Age: 76 Year
  Sex: Female

DRUGS (2)
  1. XYLOCAINE [Suspect]
     Indication: LOCAL ANAESTHESIA
     Dates: start: 20041025, end: 20041025
  2. XYLOCAINE VISCOUS [Suspect]
     Indication: LOCAL ANAESTHESIA
     Dates: start: 20041025, end: 20041025

REACTIONS (4)
  - DYSPNOEA [None]
  - ERYTHEMA [None]
  - PHARYNX DISCOMFORT [None]
  - SHOCK [None]
